FAERS Safety Report 6164387-4 (Version None)
Quarter: 2009Q2

REPORT INFORMATION
  Report Type: 
  Country: None (occurrence: None)
  Receive Date: 20090421
  Receipt Date: 20090415
  Transmission Date: 20091009
  Serious: Yes (Other)
  Sender: FDA-Public Use
  Company Number: 09-148

PATIENT
  Age: 61 Year
  Sex: Male

DRUGS (4)
  1. ALEVE [Suspect]
     Indication: ARTHRALGIA
     Dosage: 220 MG, DAILY, ORAL
     Route: 048
     Dates: start: 20090308
  2. NORVASC [Concomitant]
  3. NOVOLOG [Concomitant]
  4. LANTIS- THERAPY [Concomitant]

REACTIONS (1)
  - BLOOD GLUCOSE INCREASED [None]
